FAERS Safety Report 25344513 (Version 4)
Quarter: 2025Q3

REPORT INFORMATION
  Report Type: Report from Study
  Country: CA (occurrence: CA)
  Receive Date: 20250521
  Receipt Date: 20250923
  Transmission Date: 20251020
  Serious: Yes (Other)
  Sender: CELLTRION
  Company Number: CA-CELLTRION INC.-2025CA006557

PATIENT

DRUGS (2)
  1. ADALIMUMAB-AATY [Suspect]
     Active Substance: ADALIMUMAB-AATY
     Indication: Hidradenitis
     Dosage: 80MG WEEKLY
     Route: 058
     Dates: start: 20250219, end: 202509
  2. ADALIMUMAB-AATY [Suspect]
     Active Substance: ADALIMUMAB-AATY

REACTIONS (4)
  - Cyst [Unknown]
  - Off label use [Unknown]
  - Therapeutic response decreased [Unknown]
  - Therapy change [Unknown]

NARRATIVE: CASE EVENT DATE: 20250219
